FAERS Safety Report 21543279 (Version 1)
Quarter: 2022Q4

REPORT INFORMATION
  Report Type: Spontaneous
  Country: US (occurrence: US)
  Receive Date: 20221102
  Receipt Date: 20221102
  Transmission Date: 20230113
  Serious: No
  Sender: FDA-Public Use
  Company Number: US-SANOFI-01343955

PATIENT
  Age: 60 Year
  Sex: Female

DRUGS (2)
  1. DUPIXENT [Suspect]
     Active Substance: DUPILUMAB
     Indication: Nasal polyps
     Dosage: 300 MG, QOW
     Dates: start: 20200626, end: 20220826
  2. DUPIXENT [Suspect]
     Active Substance: DUPILUMAB
     Dosage: UNKNOWN
     Dates: start: 20221010

REACTIONS (2)
  - Illness [Recovering/Resolving]
  - Intentional dose omission [Unknown]
